FAERS Safety Report 5811287-2 (Version None)
Quarter: 2008Q3

REPORT INFORMATION
  Report Type: 
  Country: None (occurrence: None)
  Receive Date: 20080711
  Receipt Date: 20070525
  Transmission Date: 20090109
  Serious: Yes (Other)
  Sender: FDA-Public Use
  Company Number: PHEH2007US08021

PATIENT
  Age: 5 Year
  Sex: Female

DRUGS (1)
  1. TRILEPTAL [Suspect]
     Indication: PETIT MAL EPILEPSY
     Dosage: 300 MG, BID, ORAL
     Route: 048

REACTIONS (3)
  - BALANCE DISORDER [None]
  - CONVULSION [None]
  - FALL [None]
